FAERS Safety Report 11823159 (Version 1)
Quarter: 2015Q4

REPORT INFORMATION
  Report Type: Spontaneous
  Country: US (occurrence: US)
  Receive Date: 20151210
  Receipt Date: 20151210
  Transmission Date: 20160305
  Serious: No
  Sender: FDA-Public Use
  Company Number: US-ACTELION PHARMACEUTICALS US, INC.-A-NJ2015-128179

PATIENT
  Age: 68 Year
  Sex: Male
  Weight: 97.5 kg

DRUGS (8)
  1. REMODULIN [Suspect]
     Active Substance: TREPROSTINIL
     Dosage: 11 UNK, UNK
     Route: 058
     Dates: start: 20150924
  2. ADCIRCA [Concomitant]
     Active Substance: TADALAFIL
  3. REMODULIN [Suspect]
     Active Substance: TREPROSTINIL
     Dosage: UNK
     Route: 042
     Dates: start: 20130204
  4. ASPIRIN. [Concomitant]
     Active Substance: ASPIRIN
  5. REVATIO [Suspect]
     Active Substance: SILDENAFIL CITRATE
     Indication: PULMONARY ARTERIAL HYPERTENSION
     Route: 065
  6. OPSUMIT [Suspect]
     Active Substance: MACITENTAN
     Indication: PULMONARY ARTERIAL HYPERTENSION
     Route: 048
  7. REMODULIN [Suspect]
     Active Substance: TREPROSTINIL
     Indication: PULMONARY ARTERIAL HYPERTENSION
     Dosage: 36 NG/KG, PER MIN
     Route: 058
     Dates: start: 20130112
  8. TYVASO [Suspect]
     Active Substance: TREPROSTINIL
     Indication: PULMONARY ARTERIAL HYPERTENSION
     Dosage: 18-54MCG, QID
     Route: 055
     Dates: start: 20151029

REACTIONS (14)
  - Injection site discharge [Unknown]
  - Injection site pain [Unknown]
  - Presyncope [Unknown]
  - Malaise [Unknown]
  - Cough [Unknown]
  - Blister [Unknown]
  - Weight decreased [Unknown]
  - Walking distance test abnormal [Unknown]
  - Dyspnoea [Recovered/Resolved]
  - Infusion site oedema [Unknown]
  - Infusion site pain [Not Recovered/Not Resolved]
  - Infusion site haemorrhage [Unknown]
  - Dyspnoea [Unknown]
  - Infusion site infection [Unknown]

NARRATIVE: CASE EVENT DATE: 20150503
